FAERS Safety Report 20834466 (Version 1)
Quarter: 2022Q2

REPORT INFORMATION
  Report Type: Spontaneous
  Country: US (occurrence: US)
  Receive Date: 20220516
  Receipt Date: 20220516
  Transmission Date: 20220721
  Serious: No
  Sender: FDA-Public Use
  Company Number: US-PFIZER INC-202200685300

PATIENT
  Sex: Female
  Weight: 72.57 kg

DRUGS (1)
  1. PAXLOVID [Suspect]
     Active Substance: NIRMATRELVIR\RITONAVIR
     Indication: COVID-19 treatment
     Dosage: [PF-07321332 300 MG]/[RITONAVIR 100 MG]; 2X/DAY
     Dates: start: 20220506

REACTIONS (5)
  - Abdominal discomfort [Unknown]
  - Diarrhoea [Recovered/Resolved with Sequelae]
  - Gastrointestinal sounds abnormal [Unknown]
  - Product packaging confusion [Unknown]
  - Product dose confusion [Unknown]

NARRATIVE: CASE EVENT DATE: 20220507
